FAERS Safety Report 14619260 (Version 2)
Quarter: 2018Q3

REPORT INFORMATION
  Report Type: Spontaneous
  Country: DK (occurrence: DK)
  Receive Date: 20180309
  Receipt Date: 20180710
  Transmission Date: 20181010
  Serious: Yes (Hospitalization)
  Sender: FDA-Public Use
  Company Number: DK-ENDO PHARMACEUTICALS INC-2018-020992

PATIENT
  Age: 54 Year
  Sex: Male

DRUGS (1)
  1. AVEED [Suspect]
     Active Substance: TESTOSTERONE UNDECANOATE
     Indication: HYPOPITUITARISM
     Dosage: 1000 MG, UNKNOWN
     Route: 030
     Dates: start: 20110110

REACTIONS (9)
  - Epididymitis [Recovered/Resolved]
  - Orchitis [Recovered/Resolved]
  - Hot flush [Unknown]
  - Testicular pain [Recovered/Resolved]
  - Impaired quality of life [Unknown]
  - Micturition disorder [Unknown]
  - Weight increased [Not Recovered/Not Resolved]
  - Hyperhidrosis [Unknown]
  - Bilateral orchidectomy [Recovered/Resolved]

NARRATIVE: CASE EVENT DATE: 20120401
